FAERS Safety Report 14739288 (Version 2)
Quarter: 2019Q4

REPORT INFORMATION
  Report Type: Spontaneous
  Country: GB (occurrence: GB)
  Receive Date: 20180410
  Receipt Date: 20191119
  Transmission Date: 20200122
  Serious: Yes (Other)
  Sender: FDA-Public Use
  Company Number: GB-TEVA-2018-GB-880169

PATIENT
  Age: 24 Year
  Sex: Male

DRUGS (1)
  1. PROMETHAZINE [Suspect]
     Active Substance: PROMETHAZINE HYDROCHLORIDE
     Route: 065

REACTIONS (9)
  - Dizziness [Unknown]
  - Headache [Unknown]
  - Abnormal weight gain [Unknown]
  - Memory impairment [Unknown]
  - Disinhibition [Unknown]
  - Depression [Unknown]
  - Ejaculation failure [Unknown]
  - Nightmare [Unknown]
  - Anxiety [Unknown]
